FAERS Safety Report 6540589-X (Version None)
Quarter: 2010Q1

REPORT INFORMATION
  Report Type: 
  Country: None (occurrence: None)
  Receive Date: 20100118
  Receipt Date: 20100113
  Transmission Date: 20100710
  Serious: Yes (Hospitalization)
  Sender: FDA-Public Use
  Company Number: FR-ALLERGAN-1000450US

PATIENT
  Age: 83 Year
  Sex: Female

DRUGS (2)
  1. COMBIGAN [Suspect]
     Indication: GLAUCOMA
     Dosage: 2 GTT, QD
     Route: 047
     Dates: start: 20090825, end: 20090830
  2. ATHYMIL [Concomitant]
     Dosage: 10 MG, QD
     Route: 048
     Dates: start: 20090708

REACTIONS (1)
  - ACUTE RESPIRATORY FAILURE [None]
